FAERS Safety Report 9289321 (Version 1)
Quarter: 2013Q2

REPORT INFORMATION
  Report Type: Spontaneous
  Country: US (occurrence: US)
  Receive Date: 20130514
  Receipt Date: 20130514
  Transmission Date: 20140414
  Serious: Yes (Other)
  Sender: FDA-Public Use
  Company Number: CHPA2013US008032

PATIENT
  Age: 99 Year
  Sex: Female

DRUGS (7)
  1. EXCEDRIN MIGRAINE [Suspect]
     Indication: CARDIAC FAILURE
     Dosage: UNK, UNK
     Route: 048
  2. EXCEDRIN MIGRAINE [Suspect]
     Indication: HEADACHE
  3. BABY ASPIRIN [Concomitant]
     Dosage: UNK, UNK
  4. TYLENOL [Concomitant]
     Dosage: UNK, UNK
  5. ANTIHISTAMINES [Concomitant]
     Dosage: UNK, UNK
  6. LAVENDER OIL [Concomitant]
     Dosage: UNK, UNK
     Route: 061
  7. MOTRIN [Concomitant]
     Dosage: UNK, UNK

REACTIONS (7)
  - Intestinal perforation [Unknown]
  - Palatal disorder [Not Recovered/Not Resolved]
  - Local swelling [Unknown]
  - Dysphagia [Not Recovered/Not Resolved]
  - Off label use [Unknown]
  - Wrong technique in drug usage process [Unknown]
  - Expired drug administered [Unknown]
